FAERS Safety Report 10180181 (Version 1)
Quarter: 2014Q2

REPORT INFORMATION
  Report Type: Spontaneous
  Country: US (occurrence: US)
  Receive Date: 20140519
  Receipt Date: 20140519
  Transmission Date: 20141212
  Serious: No
  Sender: FDA-Public Use
  Company Number: US-AMGEN INC.-USASP2013089724

PATIENT
  Age: 79 Year
  Sex: Female

DRUGS (1)
  1. PROLIA [Suspect]
     Indication: OSTEOPOROSIS POSTMENOPAUSAL
     Dosage: UNK
     Route: 065

REACTIONS (10)
  - Dyspepsia [Unknown]
  - Eructation [Unknown]
  - Gastric disorder [Unknown]
  - Skin hypertrophy [Unknown]
  - Macule [Unknown]
  - Skin haemorrhage [Unknown]
  - Wound [Not Recovered/Not Resolved]
  - Scratch [Unknown]
  - Abdominal pain upper [Unknown]
  - Pruritus [Unknown]
